FAERS Safety Report 5086584-1 (Version None)
Quarter: 2006Q3

REPORT INFORMATION
  Report Type: 
  Country: None (occurrence: None)
  Receive Date: 20060823
  Receipt Date: 20060726
  Transmission Date: 20061208
  Serious: Yes (Hospitalization)
  Sender: FDA-Public Use
  Company Number: JP-JPN-A200602832

PATIENT
  Age: 78 Year
  Sex: Female
  Weight: 71 kg

DRUGS (10)
  1. VALTREX [Suspect]
     Indication: HERPES ZOSTER
     Dosage: 1000MG THREE TIMES PER DAY
     Route: 048
     Dates: start: 20060710, end: 20060712
  2. LOXONIN [Suspect]
     Indication: HERPES ZOSTER
     Dosage: 60MG THREE TIMES PER DAY
     Route: 048
     Dates: start: 20060710, end: 20060712
  3. ALFAROL [Concomitant]
     Indication: OSTEOPOROSIS
     Dosage: .5MG PER DAY
     Route: 048
     Dates: start: 20000101, end: 20060712
  4. MEVALOTIN [Concomitant]
     Indication: HYPERLIPIDAEMIA
     Dosage: 10MG PER DAY
     Route: 048
     Dates: start: 20000101, end: 20060712
  5. CALCIUM LACTATE [Concomitant]
     Indication: OSTEOPOROSIS
     Dosage: 2G PER DAY
     Route: 048
     Dates: start: 20000101, end: 20060712
  6. 8-HOUR BAYER [Concomitant]
     Indication: CEREBRAL INFARCTION
     Dosage: 100MG PER DAY
     Route: 048
     Dates: start: 19940101, end: 20060712
  7. LASIX [Concomitant]
     Indication: HYPERTENSION
     Dosage: 20MG PER DAY
     Route: 048
     Dates: start: 20000101, end: 20060712
  8. BLOPRESS [Concomitant]
     Indication: HYPERTENSION
     Dosage: 2MG PER DAY
     Route: 048
     Dates: start: 20000101, end: 20060712
  9. CYANOCOBALAMIN [Concomitant]
     Indication: HERPES ZOSTER
     Dosage: 1500MCG PER DAY
     Route: 048
     Dates: start: 20060710, end: 20060712
  10. VIDARABINE [Concomitant]
     Dates: start: 20060710

REACTIONS (7)
  - ABDOMINAL PAIN [None]
  - BLOOD CREATININE INCREASED [None]
  - BLOOD UREA INCREASED [None]
  - MALAISE [None]
  - OLIGURIA [None]
  - RENAL FAILURE ACUTE [None]
  - URINE OUTPUT DECREASED [None]
